FAERS Safety Report 5293907-7 (Version None)
Quarter: 2007Q2

REPORT INFORMATION
  Report Type: 
  Country: None (occurrence: None)
  Receive Date: 20070411
  Receipt Date: 20070402
  Transmission Date: 20071010
  Serious: Yes (Hospitalization)
  Sender: FDA-Public Use
  Company Number: FR-PFIZER INC-2007026377

PATIENT
  Age: 85 Year
  Sex: Male

DRUGS (5)
  1. AMLOR [Suspect]
     Route: 048
  2. ARANESP [Suspect]
     Route: 058
     Dates: start: 20070119, end: 20070119
  3. LENALIDOMIDE [Suspect]
     Route: 048
     Dates: start: 20070116, end: 20070126
  4. DEXAMETHASONE ACETATE [Concomitant]
  5. DIGOXIN [Concomitant]

REACTIONS (2)
  - DEHYDRATION [None]
  - DIARRHOEA HAEMORRHAGIC [None]
